FAERS Safety Report 25905120 (Version 1)
Quarter: 2025Q4

REPORT INFORMATION
  Report Type: Spontaneous
  Country: US (occurrence: US)
  Receive Date: 20251010
  Receipt Date: 20251010
  Transmission Date: 20260118
  Serious: No
  Sender: GLAXOSMITHKLINE
  Company Number: US-GSK-US2025117940

PATIENT
  Sex: Female

DRUGS (2)
  1. BENLYSTA [Suspect]
     Active Substance: BELIMUMAB
     Indication: Systemic lupus erythematosus
     Dosage: 200 MG, WE
  2. ASPIRIN [Concomitant]
     Active Substance: ASPIRIN
     Indication: Product used for unknown indication
     Dosage: UNK

REACTIONS (3)
  - Injection site bruising [Recovered/Resolved]
  - Urticaria [Recovered/Resolved]
  - Injection site pruritus [Recovered/Resolved]
